FAERS Safety Report 4871704-1 (Version None)
Quarter: 2005Q4

REPORT INFORMATION
  Report Type: 
  Country: None (occurrence: None)
  Receive Date: 20051230
  Receipt Date: 20051219
  Transmission Date: 20060501
  Serious: Yes (Hospitalization, Other)
  Sender: FDA-Public Use
  Company Number: 2005160281

PATIENT
  Age: 40 Year
  Sex: Male

DRUGS (2)
  1. SORTIS (ATORVASTATIN) [Suspect]
     Indication: HYPERTRIGLYCERIDAEMIA
     Dosage: 20 MG (20 MG, 1 IN 1 D), ORAL
     Route: 048
     Dates: start: 20050401, end: 20050428
  2. CONTROLOC (PANTOPRAZOLE) [Concomitant]

REACTIONS (3)
  - BLOOD TRIGLYCERIDES INCREASED [None]
  - HEPATIC ENZYME INCREASED [None]
  - PANCREATITIS ACUTE [None]
